FAERS Safety Report 25643619 (Version 3)
Quarter: 2025Q4

REPORT INFORMATION
  Report Type: Report from Study
  Country: EG (occurrence: EG)
  Receive Date: 20250805
  Receipt Date: 20251110
  Transmission Date: 20260119
  Serious: Yes (Hospitalization, Disabling)
  Sender: ABBVIE
  Company Number: EG-ABBVIE-6270291

PATIENT
  Sex: Male

DRUGS (1)
  1. HUMIRA [Suspect]
     Active Substance: ADALIMUMAB
     Indication: Colitis ulcerative
     Dosage: 1 SYRINGE, DOSE FORM- SOLUTION FOR INFUSION IN PRE-FILLED SYRINGE
     Route: 058
     Dates: start: 20240609, end: 2025

REACTIONS (21)
  - Colitis ulcerative [Not Recovered/Not Resolved]
  - Malabsorption [Unknown]
  - Haemorrhage [Unknown]
  - Decreased appetite [Unknown]
  - Limb discomfort [Unknown]
  - Anaemia [Unknown]
  - Product storage error [Unknown]
  - Haemoglobin decreased [Not Recovered/Not Resolved]
  - Gait inability [Unknown]
  - Faecal calprotectin decreased [Unknown]
  - Therapeutic product effect incomplete [Unknown]
  - Disability [Unknown]
  - Immunodeficiency [Unknown]
  - Cellulitis [Recovering/Resolving]
  - Abscess [Unknown]
  - Drug ineffective [Not Recovered/Not Resolved]
  - Anal abscess [Not Recovered/Not Resolved]
  - General physical health deterioration [Not Recovered/Not Resolved]
  - Mental disorder [Not Recovered/Not Resolved]
  - Anal inflammation [Not Recovered/Not Resolved]
  - Product quality issue [Unknown]

NARRATIVE: CASE EVENT DATE: 20250101
